FAERS Safety Report 13744442 (Version 3)
Quarter: 2017Q3

REPORT INFORMATION
  Report Type: Report from Study
  Country: US (occurrence: US)
  Receive Date: 20170712
  Receipt Date: 20170911
  Transmission Date: 20171127
  Serious: Yes (Death, Hospitalization)
  Sender: FDA-Public Use
  Company Number: US-BIOGEN-2016BI00250400

PATIENT
  Age: 52 Year
  Sex: Female

DRUGS (1)
  1. TYSABRI [Suspect]
     Active Substance: NATALIZUMAB
     Indication: MULTIPLE SCLEROSIS
     Route: 065
     Dates: start: 20150721, end: 20161123

REACTIONS (5)
  - Squamous cell carcinoma [Fatal]
  - Musculoskeletal chest pain [Not Recovered/Not Resolved]
  - Pneumonia [Recovered/Resolved]
  - Pulmonary mass [Unknown]
  - General symptom [Unknown]

NARRATIVE: CASE EVENT DATE: 201605
